FAERS Safety Report 11325244 (Version 1)
Quarter: 2015Q3

REPORT INFORMATION
  Report Type: Spontaneous
  Country: US (occurrence: US)
  Receive Date: 20150730
  Receipt Date: 20150730
  Transmission Date: 20151125
  Serious: Yes (Other)
  Sender: FDA-Public Use
  Company Number: US-SHIRE-US201508609

PATIENT
  Sex: Female
  Weight: 51 kg

DRUGS (5)
  1. CARBATROL [Suspect]
     Active Substance: CARBAMAZEPINE
     Indication: PRODUCT USED FOR UNKNOWN INDICATION
     Dosage: UNK, UNKNOWN
     Route: 048
     Dates: start: 2004, end: 2006
  2. MYSOLINE [Concomitant]
     Active Substance: PRIMIDONE
     Indication: PRODUCT USED FOR UNKNOWN INDICATION
     Dosage: UNK, UNKNOWN
     Route: 065
     Dates: start: 1972
  3. CARBATROL [Suspect]
     Active Substance: CARBAMAZEPINE
     Dosage: 1000 MG, UNKNOWN
     Route: 048
     Dates: start: 201409
  4. CARBATROL [Suspect]
     Active Substance: CARBAMAZEPINE
     Dosage: 800 MG, UNKNOWN
     Route: 048
     Dates: end: 201409
  5. KEPPRA [Concomitant]
     Active Substance: LEVETIRACETAM
     Indication: PRODUCT USED FOR UNKNOWN INDICATION
     Dosage: UNK, UNKNOWN
     Route: 065
     Dates: start: 2004, end: 2006

REACTIONS (1)
  - Cerebral disorder [Unknown]

NARRATIVE: CASE EVENT DATE: 2006
